FAERS Safety Report 9057657 (Version 1)
Quarter: 2013Q1

REPORT INFORMATION
  Report Type: Spontaneous
  Country: US (occurrence: None)
  Receive Date: 20130204
  Receipt Date: 20130204
  Transmission Date: 20140127
  Serious: Yes (Hospitalization)
  Sender: FDA-Public Use
  Company Number: None

PATIENT
  Age: 47 Year
  Sex: Male
  Weight: 99.79 kg

DRUGS (1)
  1. HUMAN INSULIN [Suspect]
     Indication: DIABETES MELLITUS
     Dates: start: 20100103, end: 20121215

REACTIONS (5)
  - Diabetes mellitus inadequate control [None]
  - Blood glucose increased [None]
  - Hypertension [None]
  - Dyspnoea [None]
  - Product quality issue [None]
